FAERS Safety Report 23630457 (Version 1)
Quarter: 2024Q1

REPORT INFORMATION
  Report Type: Spontaneous
  Country: US (occurrence: US)
  Receive Date: 20240314
  Receipt Date: 20240314
  Transmission Date: 20240410
  Serious: Yes (Other)
  Sender: FDA-Public Use
  Company Number: US-ALVOGEN-2023089321

PATIENT
  Sex: Male
  Weight: 65 kg

DRUGS (5)
  1. BUPRENORPHINE\NALOXONE [Suspect]
     Active Substance: BUPRENORPHINE\NALOXONE
     Indication: Pain
     Dosage: 8/2 MG?EXPIRATION DATE: 30-SEP-2024
     Dates: start: 2022
  2. HYDROXYZINE [Concomitant]
     Active Substance: HYDROXYZINE HYDROCHLORIDE
     Indication: Hypersensitivity
  3. BREO ELLIPTA [Concomitant]
     Active Substance: FLUTICASONE FUROATE\VILANTEROL TRIFENATATE
     Indication: Dyspnoea
     Dosage: 100/25 MCG
  4. ALBUTEROL SULFATE [Concomitant]
     Active Substance: ALBUTEROL SULFATE
     Indication: Product used for unknown indication
     Dosage: INHALATION AEROSOL (90 MCG/PER PUFF) 4 PUFFS A DAY.
  5. MUCINEX [Concomitant]
     Active Substance: GUAIFENESIN
     Indication: Oropharyngeal discomfort
     Dosage: AT BEDTIME

REACTIONS (9)
  - Respiratory distress [Unknown]
  - Asphyxia [Not Recovered/Not Resolved]
  - Feeling abnormal [Unknown]
  - Head discomfort [Unknown]
  - Dyspnoea [Unknown]
  - Anxiety [Unknown]
  - Off label use [Unknown]
  - Product prescribing error [Unknown]
  - Wrong technique in product usage process [Unknown]
